FAERS Safety Report 8577507-9 (Version None)
Quarter: 2012Q3

REPORT INFORMATION
  Report Type: 
  Country: None (occurrence: None)
  Receive Date: 20120807
  Receipt Date: 20120802
  Transmission Date: 20120928
  Serious: Yes (Other)
  Sender: FDA-Public Use
  Company Number: BR-ROCHE-1097252

PATIENT
  Sex: Female
  Weight: 56 kg

DRUGS (5)
  1. ACTEMRA [Suspect]
     Indication: RHEUMATOID ARTHRITIS
     Dates: start: 20101118
  2. TRAVATAN [Concomitant]
  3. LOSARTAN POTASSIUM [Concomitant]
  4. PRESSAT [Concomitant]
  5. PANTOPRAZOLE [Concomitant]

REACTIONS (4)
  - NEPHROLITHIASIS [None]
  - GLAUCOMA [None]
  - BLOOD URINE PRESENT [None]
  - URINARY TRACT INFECTION [None]
